FAERS Safety Report 10072153 (Version 2)
Quarter: 2014Q2

REPORT INFORMATION
  Report Type: Report from Study
  Country: US (occurrence: US)
  Receive Date: 20140411
  Receipt Date: 20140505
  Transmission Date: 20141212
  Serious: Yes (Hospitalization)
  Sender: FDA-Public Use
  Company Number: PHEH2014US006760

PATIENT
  Sex: Female

DRUGS (8)
  1. DIOVAN HCT [Suspect]
     Dosage: 1 DF (80 MG VALS/ 12. 5MG  HYDR), DAILY
     Dates: end: 20140331
  2. HYDROCHLOROTHIAZIDE,VALSARTAN [Suspect]
     Dosage: UNK UKN, UNK
  3. METOPROLOL [Suspect]
     Dosage: UNK UKN, UNK
  4. TOPROL [Suspect]
     Dosage: UNK UKN, UNK
  5. LOPRESSOR [Concomitant]
     Dosage: UNK UKN, UNK
  6. PLAVIX [Concomitant]
     Dosage: UNK UKN, UNK
  7. LASIX [Concomitant]
     Dosage: UNK UKN, UNK
  8. SYNTHROID [Concomitant]
     Dosage: UNK UKN, UNK

REACTIONS (6)
  - Myocardial infarction [Unknown]
  - Feeling abnormal [Unknown]
  - Medical device complication [Unknown]
  - Hypersensitivity [Unknown]
  - Drug hypersensitivity [Unknown]
  - Hypertension [Unknown]
